FAERS Safety Report 6862562-4 (Version None)
Quarter: 2010Q3

REPORT INFORMATION
  Report Type: 
  Country: None (occurrence: None)
  Receive Date: 20100721
  Receipt Date: 20100714
  Transmission Date: 20110219
  Serious: Yes (Other)
  Sender: FDA-Public Use
  Company Number: US-SANOFI-AVENTIS-2010SA041811

PATIENT
  Sex: Male

DRUGS (4)
  1. PLAVIX [Suspect]
     Route: 065
     Dates: start: 20070101
  2. PANTOPRAZOLE [Concomitant]
  3. SIMVASTATIN [Concomitant]
  4. ZIAC [Concomitant]

REACTIONS (2)
  - FALL [None]
  - MULTIPLE FRACTURES [None]
